FAERS Safety Report 21398360 (Version 4)
Quarter: 2022Q4

REPORT INFORMATION
  Report Type: Spontaneous
  Country: US (occurrence: US)
  Receive Date: 20220930
  Receipt Date: 20221220
  Transmission Date: 20230113
  Serious: No
  Sender: FDA-Public Use
  Company Number: US-BIOGEN-2022BI01157138

PATIENT
  Sex: Male

DRUGS (1)
  1. TYSABRI [Suspect]
     Active Substance: NATALIZUMAB
     Indication: Multiple sclerosis
     Route: 050
     Dates: start: 20070206, end: 20100816

REACTIONS (5)
  - Chronic kidney disease [Unknown]
  - Anxiety [Unknown]
  - Urinary tract infection [Unknown]
  - Herpes zoster [Recovered/Resolved]
  - Cystitis [Recovered/Resolved]
